FAERS Safety Report 9609789 (Version 1)
Quarter: 2013Q4

REPORT INFORMATION
  Report Type: Spontaneous
  Country: US (occurrence: None)
  Receive Date: 20131008
  Receipt Date: 20131008
  Transmission Date: 20140711
  Serious: Yes (Hospitalization)
  Sender: FDA-Public Use
  Company Number: None

PATIENT
  Age: 34 Year
  Sex: Male
  Weight: 94 kg

DRUGS (7)
  1. VANCOMYCIN [Suspect]
     Indication: ENDOCARDITIS STAPHYLOCOCCAL
     Route: 042
     Dates: start: 20130911, end: 20130916
  2. VANCOMYCIN [Suspect]
     Indication: SEPSIS
     Route: 042
     Dates: start: 20130911, end: 20130916
  3. ASPIRIN 81 MG [Concomitant]
  4. FUROSEMIDE 40 MG [Concomitant]
  5. LISINOPRIL 2.5 MG [Concomitant]
  6. METFORMIN 500 MG [Concomitant]
  7. POTASSIUM CHLORIDE [Concomitant]

REACTIONS (1)
  - Renal failure acute [None]
